FAERS Safety Report 24729317 (Version 1)
Quarter: 2024Q4

REPORT INFORMATION
  Report Type: Spontaneous
  Country: ES (occurrence: ES)
  Receive Date: 20241213
  Receipt Date: 20241213
  Transmission Date: 20250115
  Serious: Yes (Other)
  Sender: AUROBINDO
  Company Number: ES-AEMPS-1599566

PATIENT
  Age: 40 Year
  Sex: Male

DRUGS (1)
  1. PIPERACILLIN SODIUM\TAZOBACTAM SODIUM [Suspect]
     Active Substance: PIPERACILLIN SODIUM\TAZOBACTAM SODIUM
     Indication: Postoperative wound infection
     Dosage: UNK UNK, FOUR TIMES/DAY [4/0.5G VIAL CADA 6 HORAS]
     Route: 042
     Dates: start: 20230720, end: 20230805

REACTIONS (3)
  - Neutropenia [Recovered/Resolved]
  - Mixed liver injury [Recovered/Resolved]
  - Thrombocytopenia [Recovered/Resolved]

NARRATIVE: CASE EVENT DATE: 20230804
